FAERS Safety Report 8130287-3 (Version None)
Quarter: 2012Q1

REPORT INFORMATION
  Report Type: 
  Country: None (occurrence: None)
  Receive Date: 20120210
  Receipt Date: 20120207
  Transmission Date: 20120608
  Serious: Yes (Death, Hospitalization)
  Sender: FDA-Public Use
  Company Number: PHHY2012MX009810

PATIENT
  Sex: Male

DRUGS (1)
  1. DIOVAN HCT [Suspect]
     Indication: HYPERTENSION
     Dosage: 1 DF (160/12.5 MG), DAILY
     Route: 048
     Dates: end: 20120101

REACTIONS (6)
  - HERNIA [None]
  - SOMNOLENCE [None]
  - INFARCTION [None]
  - DECREASED APPETITE [None]
  - CARDIAC FAILURE [None]
  - FLANK PAIN [None]
